FAERS Safety Report 6980348-7 (Version None)
Quarter: 2010Q3

REPORT INFORMATION
  Report Type: 
  Country: None (occurrence: None)
  Receive Date: 20100914
  Receipt Date: 20100908
  Transmission Date: 20110219
  Serious: Yes (Other)
  Sender: FDA-Public Use
  Company Number: US-BAYER-201039038GPV

PATIENT

DRUGS (4)
  1. SORAFENIB [Suspect]
     Indication: ACUTE LEUKAEMIA
     Dosage: TOTAL DAILY DOSE: 1200 MG
  2. SORAFENIB [Suspect]
     Dosage: TOTAL DAILY DOSE: 1200 MG
  3. SORAFENIB [Suspect]
     Dosage: TOTAL DAILY DOSE: 1200 MG
  4. SORAFENIB [Suspect]
     Dosage: TOTAL DAILY DOSE: 1200 MG

REACTIONS (1)
  - DRUG TOXICITY [None]
